FAERS Safety Report 6375867-0 (Version None)
Quarter: 2009Q3

REPORT INFORMATION
  Report Type: 
  Country: None (occurrence: None)
  Receive Date: 20090924
  Receipt Date: 20090915
  Transmission Date: 20100115
  Serious: Yes (Other)
  Sender: FDA-Public Use
  Company Number: MX-GILEAD-2009-0024273

PATIENT
  Age: 40 Year
  Sex: Male

DRUGS (3)
  1. TRUVADA [Suspect]
     Indication: PROPHYLAXIS AGAINST HIV INFECTION
     Route: 048
     Dates: start: 20090825, end: 20090911
  2. KALETRA [Suspect]
     Indication: PROPHYLAXIS AGAINST HIV INFECTION
     Route: 048
     Dates: start: 20090825, end: 20090911
  3. EFAVIRENZ [Suspect]
     Indication: PROPHYLAXIS AGAINST HIV INFECTION

REACTIONS (7)
  - CONFUSIONAL STATE [None]
  - GASTRODUODENITIS [None]
  - GENITAL HERPES [None]
  - HEADACHE [None]
  - INFLAMMATION [None]
  - SYNCOPE [None]
  - TACHYCARDIA [None]
